FAERS Safety Report 21799064 (Version 3)
Quarter: 2023Q1

REPORT INFORMATION
  Report Type: Spontaneous
  Country: UA (occurrence: UA)
  Receive Date: 20221230
  Receipt Date: 20230117
  Transmission Date: 20230418
  Serious: Yes (Other)
  Sender: FDA-Public Use
  Company Number: UA-002147023-NVSC2022UA299269

PATIENT
  Sex: Male
  Weight: 2 kg

DRUGS (5)
  1. FILGRASTIM [Suspect]
     Active Substance: FILGRASTIM
     Indication: Foetal exposure during pregnancy
     Dosage: MATERNAL EXPOSURE DURING PREGNANCY (AT 16 WEEKS)
     Route: 064
  2. METHYLPREDNISOLONE [Concomitant]
     Active Substance: METHYLPREDNISOLONE
     Indication: Foetal exposure during pregnancy
     Dosage: MATERNAL EXPOSURE DURING PREGNANCY: 24 MG PER DAY (AT 16 WEEKS)
     Route: 064
  3. METHYLPREDNISOLONE [Concomitant]
     Active Substance: METHYLPREDNISOLONE
     Dosage: MATERNAL EXPOSURE DURING PREGNANCY: 20 MG PER DAY (AT 31-32 WEEKS)
     Route: 064
  4. METHYLPREDNISOLONE [Concomitant]
     Active Substance: METHYLPREDNISOLONE
     Dosage: MATERNAL EXPOSURE DURING PREGNANCY: 16 MG PER DAY (AT 31-32 WEEKS)
     Route: 064
  5. URSODIOL [Concomitant]
     Active Substance: URSODIOL
     Indication: Foetal exposure during pregnancy
     Dosage: MATERNAL EXPOSURE DURING PREGNANCY: 1000 MG PER DAY (AT 16 WEEKS)
     Route: 064

REACTIONS (3)
  - Foetal distress syndrome [Unknown]
  - Foetal exposure during pregnancy [Unknown]
  - Normal newborn [Unknown]
